FAERS Safety Report 6251993-1 (Version None)
Quarter: 2009Q2

REPORT INFORMATION
  Report Type: 
  Country: None (occurrence: None)
  Receive Date: 20090630
  Receipt Date: 20080721
  Transmission Date: 20091009
  Serious: Yes (Hospitalization)
  Sender: FDA-Public Use
  Company Number: US-ROCHE-638339

PATIENT
  Sex: Male

DRUGS (19)
  1. ENFUVIRTIDE [Suspect]
     Route: 065
     Dates: start: 20030602, end: 20080814
  2. TRIZIVIR [Concomitant]
     Dates: start: 20030602, end: 20060223
  3. INVIRASE [Concomitant]
     Dates: start: 20030601, end: 20050308
  4. INVIRASE [Concomitant]
     Dates: start: 20050309, end: 20070111
  5. NORVIR [Concomitant]
     Dates: start: 20030601, end: 20080814
  6. EPZICOM [Concomitant]
     Dosage: FREQUENCY: QD.
     Dates: start: 20060223, end: 20070111
  7. VIREAD [Concomitant]
     Dosage: FREQUENCY: QD.
     Dates: start: 20060223, end: 20070111
  8. ISENTRESS [Concomitant]
     Dates: start: 20070111, end: 20080814
  9. PREZISTA [Concomitant]
     Dates: start: 20070111, end: 20080814
  10. TRUVADA [Concomitant]
     Dosage: FREQUENCY: QD.
     Dates: start: 20070111, end: 20080814
  11. ETRAVIRINE [Concomitant]
     Dosage: FREQUENCY: 2BID. DRUG: INTELENCE.
     Dates: start: 20080711, end: 20080814
  12. PENICILLIN [Concomitant]
     Dosage: FREQUENCY: G CEHIS
     Dates: start: 20051127, end: 20051204
  13. PENICILLIN [Concomitant]
     Dates: start: 20080125, end: 20080201
  14. CEFTIN [Concomitant]
     Dates: start: 20060130, end: 20060214
  15. CEFTIN [Concomitant]
     Dates: start: 20060511, end: 20060522
  16. CEFTIN [Concomitant]
     Dates: start: 20070322, end: 20070402
  17. TEQUIN [Concomitant]
     Dosage: FREQUENCY: QD.
     Dates: start: 20060718, end: 20060802
  18. DOXYCYCLINE [Concomitant]
     Dosage: FREQUENCY: QD.
     Dates: start: 20061212, end: 20061226
  19. ZITHROMAX [Concomitant]
     Dosage: FREQUENCY: QD.
     Dates: start: 20071212, end: 20071222

REACTIONS (1)
  - PROSTATITIS [None]
